FAERS Safety Report 7359809-7 (Version None)
Quarter: 2011Q1

REPORT INFORMATION
  Report Type: 
  Country: None (occurrence: None)
  Receive Date: 20110317
  Receipt Date: 20110310
  Transmission Date: 20110831
  Serious: Yes (Death, Other)
  Sender: FDA-Public Use
  Company Number: US-ABBOTT-11P-163-0703969-00

PATIENT
  Age: 5 Year
  Sex: Male

DRUGS (2)
  1. METHOTREXATE [Concomitant]
     Indication: PROPHYLAXIS AGAINST GRAFT VERSUS HOST DISEASE
  2. CYCLOSPORINE [Suspect]
     Indication: PROPHYLAXIS AGAINST GRAFT VERSUS HOST DISEASE

REACTIONS (7)
  - ACUTE RESPIRATORY DISTRESS SYNDROME [None]
  - PULMONARY ARTERIAL HYPERTENSION [None]
  - LUNG DISORDER [None]
  - RESPIRATORY FAILURE [None]
  - THROMBOTIC THROMBOCYTOPENIC PURPURA [None]
  - ENDOTHELIAL DYSFUNCTION [None]
  - VON WILLEBRAND'S FACTOR ACTIVITY DECREASED [None]
